FAERS Safety Report 9887544 (Version 1)
Quarter: 2013Q4

REPORT INFORMATION
  Report Type: Spontaneous
  Country: US (occurrence: None)
  Receive Date: 20131223
  Receipt Date: 20131223
  Transmission Date: 20140711
  Serious: No
  Sender: FDA-Public Use
  Company Number: 220776

PATIENT
  Sex: Female

DRUGS (2)
  1. PICATO (GEL) [Suspect]
     Indication: ACTINIC KERATOSIS
     Route: 061
     Dates: start: 20130213, end: 20130215
  2. CONTRACEPTIVES (CONTRACEPTIVES NOS) [Concomitant]

REACTIONS (3)
  - Application site erythema [None]
  - Application site swelling [None]
  - Application site vesicles [None]
